FAERS Safety Report 6238502-8 (Version None)
Quarter: 2009Q2

REPORT INFORMATION
  Report Type: 
  Country: None (occurrence: None)
  Receive Date: 20090622
  Receipt Date: 20090605
  Transmission Date: 20091009
  Serious: No
  Sender: FDA-Public Use
  Company Number: US-ROCHE-636772

PATIENT
  Age: 30 Year
  Sex: Female

DRUGS (4)
  1. TAMIFLU [Suspect]
     Indication: INFLUENZA
     Route: 065
     Dates: start: 20090528, end: 20090604
  2. TAMIFLU [Suspect]
     Route: 065
     Dates: start: 20090605, end: 20090605
  3. ALBUTEROL [Concomitant]
     Indication: ASTHMA
  4. SYMBICORT [Concomitant]
     Indication: ASTHMA
     Dosage: DRUG GIVEN AS: SYMBACORT

REACTIONS (4)
  - ASTHENIA [None]
  - CHEST PAIN [None]
  - CHILLS [None]
  - INAPPROPRIATE SCHEDULE OF DRUG ADMINISTRATION [None]
